FAERS Safety Report 16001864 (Version 9)
Quarter: 2020Q2

REPORT INFORMATION
  Report Type: Report from Study
  Country: US (occurrence: US)
  Receive Date: 20190225
  Receipt Date: 20200514
  Transmission Date: 20200713
  Serious: No
  Sender: FDA-Public Use
  Company Number: PHEH2019US008181

PATIENT
  Age: 42 Year
  Sex: Female

DRUGS (3)
  1. GILENYA [Suspect]
     Active Substance: FINGOLIMOD HYDROCHLORIDE
     Route: 048
  2. GILENYA [Suspect]
     Active Substance: FINGOLIMOD HYDROCHLORIDE
     Indication: MULTIPLE SCLEROSIS
     Dosage: 0.5 MG, QD
     Route: 048
  3. GILENYA [Suspect]
     Active Substance: FINGOLIMOD HYDROCHLORIDE
     Indication: MULTIPLE SCLEROSIS
     Dosage: 0.5 MG, QD
     Route: 048
     Dates: start: 20181109

REACTIONS (8)
  - Pain in extremity [Unknown]
  - Dysgraphia [Unknown]
  - Hair texture abnormal [Unknown]
  - Dry skin [Unknown]
  - Weight increased [Unknown]
  - Dry eye [Not Recovered/Not Resolved]
  - Dry mouth [Unknown]
  - Alopecia [Unknown]

NARRATIVE: CASE EVENT DATE: 20200513
